FAERS Safety Report 7827036-2 (Version None)
Quarter: 2011Q4

REPORT INFORMATION
  Report Type: 
  Country: None (occurrence: None)
  Receive Date: 20111020
  Receipt Date: 20111011
  Transmission Date: 20120403
  Serious: Yes (Other)
  Sender: FDA-Public Use
  Company Number: JP-ASTELLAS-2011JP007333

PATIENT
  Age: 34 Year
  Sex: Female

DRUGS (9)
  1. MYCOPHENOLATE MOFETIL [Concomitant]
     Indication: PROPHYLAXIS AGAINST GRAFT VERSUS HOST DISEASE
     Route: 065
  2. ETOPOSIDE [Concomitant]
     Indication: CHEMOTHERAPY
     Route: 065
  3. DOXORUBICIN HCL [Concomitant]
     Indication: CHEMOTHERAPY
     Route: 065
  4. FLUDARABINE PHOSPHATE [Concomitant]
     Route: 065
  5. PREDNISOLONE [Concomitant]
     Indication: CHEMOTHERAPY
     Route: 065
  6. MELPHALAN HYDROCHLORIDE [Concomitant]
     Route: 065
  7. CYCLOPHOSPHAMIDE [Concomitant]
     Indication: CHEMOTHERAPY
     Route: 065
  8. VINCRISTINE [Concomitant]
     Indication: CHEMOTHERAPY
     Route: 065
  9. PROGRAF [Suspect]
     Indication: PROPHYLAXIS AGAINST GRAFT VERSUS HOST DISEASE
     Route: 065

REACTIONS (2)
  - DRUG INEFFECTIVE [None]
  - ACUTE GRAFT VERSUS HOST DISEASE [None]
